FAERS Safety Report 11049962 (Version 1)
Quarter: 2015Q2

REPORT INFORMATION
  Report Type: Spontaneous
  Country: US (occurrence: US)
  Receive Date: 20150420
  Receipt Date: 20150420
  Transmission Date: 20150821
  Serious: No
  Sender: FDA-Public Use
  Company Number: US-PURDUE-USA-2015-0122311

PATIENT
  Sex: Male

DRUGS (3)
  1. MS CONTIN [Suspect]
     Active Substance: MORPHINE SULFATE
     Indication: PAIN
     Dosage: 100 MG, BID
     Route: 048
  2. OXYCODONE HCL TABLETS (RHODES 91-490) [Concomitant]
     Active Substance: OXYCODONE HYDROCHLORIDE
     Indication: PAIN
     Route: 048
  3. OXYCONTIN [Suspect]
     Active Substance: OXYCODONE HYDROCHLORIDE
     Indication: PAIN
     Dosage: 80 MG, Q12H
     Route: 048

REACTIONS (4)
  - Drug withdrawal syndrome [Unknown]
  - Drug effect increased [Unknown]
  - Feeling abnormal [Unknown]
  - Inadequate analgesia [Unknown]
